FAERS Safety Report 19802828 (Version 1)
Quarter: 2021Q3

REPORT INFORMATION
  Report Type: Spontaneous
  Country: US (occurrence: US)
  Receive Date: 20210903
  Receipt Date: 20210903
  Transmission Date: 20211014
  Serious: No
  Sender: FDA-Public Use
  Company Number: None

PATIENT
  Age: 67 Year
  Sex: Female

DRUGS (1)
  1. KESIMPTA [Suspect]
     Active Substance: OFATUMUMAB
     Dosage: OTHER
     Route: 058
     Dates: start: 20210601, end: 20210729

REACTIONS (2)
  - Dizziness [None]
  - Disorientation [None]

NARRATIVE: CASE EVENT DATE: 20210705
